FAERS Safety Report 4307871-8 (Version None)
Quarter: 2004Q1

REPORT INFORMATION
  Report Type: 
  Country: None (occurrence: None)
  Receive Date: 20040225
  Receipt Date: 20030409
  Transmission Date: 20041129
  Serious: Yes (Disabling, Other)
  Sender: FDA-Public Use
  Company Number: WAES 0304USA01125

PATIENT
  Age: 54 Year
  Sex: Female
  Weight: 110.6777 kg

DRUGS (6)
  1. ZOCOR [Suspect]
     Dosage: 20 MG/HS/PO
     Route: 048
     Dates: start: 20010930
  2. BUSPAR [Concomitant]
  3. DIOVAN HCT [Concomitant]
  4. PRILOSEC [Concomitant]
  5. ATENOLOL [Concomitant]
  6. GEMFIBROZIL [Concomitant]

REACTIONS (2)
  - BLOOD CREATINE PHOSPHOKINASE INCREASED [None]
  - MYALGIA [None]
